FAERS Safety Report 23389422 (Version 1)
Quarter: 2024Q1

REPORT INFORMATION
  Report Type: Spontaneous
  Country: CA (occurrence: CA)
  Receive Date: 20240110
  Receipt Date: 20240110
  Transmission Date: 20240410
  Serious: Yes (Other)
  Sender: FDA-Public Use
  Company Number: CA-DRL-USA-SPO/CAN/24/0000175

PATIENT
  Age: 81 Year
  Sex: Male

DRUGS (4)
  1. ATORVASTATIN [Suspect]
     Active Substance: ATORVASTATIN
     Indication: Cerebrovascular accident prophylaxis
     Route: 048
  2. AMLODIPINE [Concomitant]
     Active Substance: AMLODIPINE BESYLATE
     Indication: Product used for unknown indication
  3. ASPIRIN [Concomitant]
     Active Substance: ASPIRIN
     Indication: Product used for unknown indication
  4. HYDROXYZINE [Concomitant]
     Active Substance: HYDROXYZINE HYDROCHLORIDE
     Indication: Product used for unknown indication

REACTIONS (5)
  - Decreased appetite [Unknown]
  - Liver function test increased [Unknown]
  - Jaundice [Unknown]
  - Pruritus [Unknown]
  - Product use in unapproved indication [Unknown]
